FAERS Safety Report 6572461-3 (Version None)
Quarter: 2010Q1

REPORT INFORMATION
  Report Type: 
  Country: None (occurrence: None)
  Receive Date: 20100128
  Receipt Date: 20100114
  Transmission Date: 20100710
  Serious: Yes (Hospitalization)
  Sender: FDA-Public Use
  Company Number: 2010021856

PATIENT
  Sex: Female
  Weight: 106.5953 kg

DRUGS (28)
  1. IMMUNE GLOBULIN (HUMAN) [Suspect]
     Indication: HYPOGAMMAGLOBULINAEMIA
     Dosage: ML WEEKLY IN 3 SITES OVER 2-4 HOURS SUBCUTANEOUS) (46 ML, 46 ML WEEKLY SUBCUTANEOUS)
     Route: 058
     Dates: start: 20090511
  2. IMMUNE GLOBULIN (HUMAN) [Suspect]
     Indication: HYPOGAMMAGLOBULINAEMIA
     Dosage: ML WEEKLY IN 3 SITES OVER 2-4 HOURS SUBCUTANEOUS) (46 ML, 46 ML WEEKLY SUBCUTANEOUS)
     Route: 058
     Dates: start: 20090522
  3. IMMUNE GLOBULIN (HUMAN) [Suspect]
  4. LYRICA [Suspect]
  5. VITAMIN D (ERCOGCALCIFEROL) [Concomitant]
  6. YAZ [Concomitant]
  7. ACETAMINOPHEN [Concomitant]
  8. DIPHENHYDRAMINE HCI (DIPHENHYDRAMINE) [Concomitant]
  9. ESTRATEST H.S. [Concomitant]
  10. FORTAMET [Concomitant]
  11. CELEBREX [Concomitant]
  12. OXYCONTIN [Concomitant]
  13. SKELAXIN [Concomitant]
  14. ABILIFY [Concomitant]
  15. CLARITIN [Concomitant]
  16. SINGULAIR [Concomitant]
  17. ZANTAC 75 [Concomitant]
  18. VALIUM [Concomitant]
  19. PERCOCET [Concomitant]
  20. JANUVIA (ANTI-DIABETICS) [Concomitant]
  21. PROVIGIL [Concomitant]
  22. IMODIUM A-D (IMODIUM /01493801/) [Concomitant]
  23. WELLBUTRIN SR [Concomitant]
  24. LAMISIL [Concomitant]
  25. EPIPEN [Concomitant]
  26. LMX 4 PLUS (LIDOCAINE) [Concomitant]
  27. DITROPAN XL [Concomitant]
  28. ACTOS [Concomitant]

REACTIONS (1)
  - RENAL FAILURE ACUTE [None]
